FAERS Safety Report 6663516-3 (Version None)
Quarter: 2010Q1

REPORT INFORMATION
  Report Type: 
  Country: None (occurrence: None)
  Receive Date: 20100331
  Receipt Date: 20100331
  Transmission Date: 20100710
  Serious: Yes (Other)
  Sender: FDA-Public Use
  Company Number: None

PATIENT
  Age: 47 Year
  Sex: Female
  Weight: 87.0906 kg

DRUGS (2)
  1. MIDODRINE HYDROCHLORIDE [Suspect]
     Indication: HYPOTENSION
     Dosage: 5MG 1 B.I.D. PO
     Route: 048
     Dates: start: 20100317, end: 20100330
  2. FLORINEF [Suspect]

REACTIONS (8)
  - BLOOD PRESSURE INCREASED [None]
  - COLITIS [None]
  - DRUG INEFFECTIVE [None]
  - HEADACHE [None]
  - INSOMNIA [None]
  - MICTURITION DISORDER [None]
  - NAUSEA [None]
  - VOMITING [None]
